FAERS Safety Report 8887073 (Version 2)
Quarter: 2013Q2

REPORT INFORMATION
  Report Type: Spontaneous
  Country: ZA (occurrence: ZA)
  Receive Date: 20121101
  Receipt Date: 20130426
  Transmission Date: 20140414
  Serious: Yes (Hospitalization)
  Sender: FDA-Public Use
  Company Number: PHHY2012ZA097620

PATIENT
  Sex: 0

DRUGS (6)
  1. OFLOXACIN [Suspect]
     Indication: TUBERCULOSIS
     Route: 048
  2. STREPTOMYCIN [Suspect]
     Indication: TUBERCULOSIS
  3. ETHIONAMIDE [Suspect]
     Indication: TUBERCULOSIS
  4. ETHAMBUTOL [Concomitant]
     Indication: TUBERCULOSIS
  5. RIFAMPICIN [Concomitant]
  6. PYRAZINAMIDE [Concomitant]
     Indication: TUBERCULOSIS

REACTIONS (7)
  - Blood pressure increased [Unknown]
  - Drug hypersensitivity [Unknown]
  - Nausea [Unknown]
  - Burning sensation [Unknown]
  - Pain [Unknown]
  - Pain in extremity [Unknown]
  - Face oedema [Unknown]
